FAERS Safety Report 5766193-9 (Version None)
Quarter: 2008Q2

REPORT INFORMATION
  Report Type: 
  Country: None (occurrence: None)
  Receive Date: 20080609
  Receipt Date: 20080507
  Transmission Date: 20081010
  Serious: No
  Sender: FDA-Public Use
  Company Number: 002#2#2008-00392

PATIENT
  Age: 66 Year
  Sex: Male
  Weight: 103.8737 kg

DRUGS (15)
  1. NEUPRO [Suspect]
     Indication: PARKINSON'S DISEASE
     Dosage: 4MG/24H,1 IN 1 D,TRANSDERMAL ; 4MG/H24,1 IN 1 D,TRANSDERMAL
     Route: 062
     Dates: start: 20071101, end: 20080501
  2. NEUPRO [Suspect]
     Indication: PARKINSON'S DISEASE
     Dosage: 4MG/24H,1 IN 1 D,TRANSDERMAL ; 4MG/H24,1 IN 1 D,TRANSDERMAL
     Route: 062
     Dates: start: 20080502
  3. STALEVO 100 [Concomitant]
  4. WELLBUTRIN SR [Concomitant]
  5. TRILEPTAL [Concomitant]
  6. PACERONE [Concomitant]
  7. ASPIRIN [Concomitant]
  8. GLUCOSAMINE SULFATE [Concomitant]
  9. CHROMIUM PERCULATE [Concomitant]
  10. MUSCLE RELAXANT [Concomitant]
  11. KLONOPIN [Concomitant]
  12. LEVOTHYROXINE SODIUM [Concomitant]
  13. IBUPROFEN [Concomitant]
  14. DESONIDE CREAM [Concomitant]
  15. PRILOSEC [Concomitant]

REACTIONS (3)
  - APPLICATION SITE IRRITATION [None]
  - PHARMACEUTICAL PRODUCT COMPLAINT [None]
  - SKIN IRRITATION [None]
